FAERS Safety Report 21515998 (Version 2)
Quarter: 2022Q4

REPORT INFORMATION
  Report Type: Spontaneous
  Country: MY (occurrence: MY)
  Receive Date: 20221027
  Receipt Date: 20221103
  Transmission Date: 20230112
  Serious: Yes (Life-Threatening, Hospitalization, Other)
  Sender: FDA-Public Use
  Company Number: MY-MLMSERVICE-20221017-3864892-1

PATIENT
  Age: 31 Year
  Sex: Male

DRUGS (1)
  1. OLANZAPINE [Suspect]
     Active Substance: OLANZAPINE
     Indication: Schizophrenia
     Dosage: 10 MG, DAILY
     Route: 065

REACTIONS (2)
  - Acute kidney injury [Recovered/Resolved]
  - Neuroleptic malignant syndrome [Recovered/Resolved]
